FAERS Safety Report 7441748-4 (Version None)
Quarter: 2011Q2

REPORT INFORMATION
  Report Type: 
  Country: None (occurrence: None)
  Receive Date: 20110425
  Receipt Date: 20110425
  Transmission Date: 20111010
  Serious: Yes (Hospitalization, Other)
  Sender: FDA-Public Use
  Company Number: None

PATIENT
  Age: 84 Year
  Sex: Female
  Weight: 67.586 kg

DRUGS (1)
  1. METHOTREXATE [Suspect]
     Indication: FIBROMYALGIA
     Dosage: SIX TABLETS ONE DAY WEEK PO
     Route: 048
     Dates: start: 20090801, end: 20110123

REACTIONS (2)
  - ASTHENIA [None]
  - HAEMOGLOBIN DECREASED [None]
